FAERS Safety Report 6252316-4 (Version None)
Quarter: 2009Q2

REPORT INFORMATION
  Report Type: 
  Country: None (occurrence: None)
  Receive Date: 20090629
  Receipt Date: 20090629
  Transmission Date: 20091009
  Serious: Yes (Life-Threatening, Hospitalization)
  Sender: FDA-Public Use
  Company Number: None

PATIENT
  Age: 57 Year
  Sex: Female
  Weight: 90.7194 kg

DRUGS (4)
  1. ALLERGY DN PE [Suspect]
     Indication: COUGH
     Dosage: 40 MG PHENYLEPHRINE HCL 1 AM/ 1 PM ORAL 10 MG 8MCHLORPHENE
     Route: 048
  2. ALLERGY DN PE [Suspect]
     Indication: SINUSITIS
     Dosage: 40 MG PHENYLEPHRINE HCL 1 AM/ 1 PM ORAL 10 MG 8MCHLORPHENE
     Route: 048
  3. AVELOX [Suspect]
     Indication: MULTIPLE ALLERGIES
     Dosage: 400 MG 1 PR DAY ORAL
     Route: 048
  4. BENZONATATE [Suspect]
     Dosage: 3 TIMES PER DAY 200 MG

REACTIONS (3)
  - ANURIA [None]
  - SWELLING FACE [None]
  - URINE FLOW DECREASED [None]
